FAERS Safety Report 6748002-4 (Version None)
Quarter: 2010Q2

REPORT INFORMATION
  Report Type: 
  Country: None (occurrence: None)
  Receive Date: 20100528
  Receipt Date: 20100521
  Transmission Date: 20101027
  Serious: Yes (Other)
  Sender: FDA-Public Use
  Company Number: US-AMGEN-QUU410319

PATIENT
  Sex: Female
  Weight: 69 kg

DRUGS (8)
  1. NPLATE [Suspect]
     Indication: IDIOPATHIC THROMBOCYTOPENIC PURPURA
     Route: 058
     Dates: start: 20090706, end: 20100203
  2. CORTICOSTEROIDS [Concomitant]
     Dates: start: 20090312
  3. METOPROLOL [Concomitant]
  4. BENICAR [Concomitant]
  5. LISINOPRIL [Concomitant]
  6. PRAVASTATIN [Concomitant]
  7. CENTRUM SILVER [Concomitant]
  8. FUROSEMIDE [Concomitant]

REACTIONS (1)
  - THERAPEUTIC RESPONSE DECREASED [None]
